FAERS Safety Report 9215934 (Version 1)
Quarter: 2013Q2

REPORT INFORMATION
  Report Type: Spontaneous
  Country: US (occurrence: None)
  Receive Date: 20130403
  Receipt Date: 20130403
  Transmission Date: 20140414
  Serious: Yes (Other)
  Sender: FDA-Public Use
  Company Number: DAV-AE-MTX-13-25

PATIENT
  Age: 61 Year
  Sex: Male

DRUGS (3)
  1. METHOTREXATE [Suspect]
     Indication: MALIGNANT NEOPLASM OF EYE
     Dosage: BIWEEKLY 1 MONTH, WEEKLY 1 MONTH, MONTHLY MAINTENANCE INJ. (KERATIS AFTER 6 MOS.-AFTER 6 M. INJ.?
     Route: 042
  2. METHOTREXATE [Suspect]
     Indication: LYMPHOMA
     Dosage: BIWEEKLY 1 MONTH, WEEKLY 1 MONTH, MONTHLY MAINTENANCE INJ. (KERATIS AFTER 6 MOS.-AFTER 6 M. INJ.?
     Route: 042
  3. RITUXIMAB [Concomitant]

REACTIONS (2)
  - Keratitis [None]
  - Corneal disorder [None]
